FAERS Safety Report 5649452-X (Version None)
Quarter: 2008Q1

REPORT INFORMATION
  Report Type: 
  Country: None (occurrence: None)
  Receive Date: 20080304
  Receipt Date: 20080228
  Transmission Date: 20080703
  Serious: Yes (Hospitalization)
  Sender: FDA-Public Use
  Company Number: US-GENENTECH-253083

PATIENT
  Sex: Male
  Weight: 66.667 kg

DRUGS (16)
  1. BEVACIZUMAB [Suspect]
     Indication: TONSIL CANCER
     Dosage: 15 MG/M2, UNK
     Route: 042
     Dates: start: 20070621
  2. ERLOTINIB [Suspect]
     Indication: TONSIL CANCER
     Dosage: 150 MG, QD
     Route: 048
     Dates: start: 20070621, end: 20070830
  3. TAXOL [Suspect]
     Indication: TONSIL CANCER
     Dosage: 200 MG/M2, UNK
     Route: 042
     Dates: start: 20070621
  4. CARBOPLATIN [Suspect]
     Indication: TONSIL CANCER
     Dosage: 5 AUC, UNK
     Route: 042
     Dates: start: 20070621
  5. FLUOROURACIL [Suspect]
     Indication: TONSIL CANCER
     Dosage: 200 MG/M2, UNK
     Dates: start: 20070621
  6. LORTAB [Concomitant]
     Indication: DRUG USE FOR UNKNOWN INDICATION
     Dosage: 7.5 MG, PRN
  7. PLAVIX [Concomitant]
     Indication: DRUG USE FOR UNKNOWN INDICATION
     Dosage: 75 MG, QD
  8. INHALER (TYPE UNKNOWN) [Concomitant]
     Indication: DRUG USE FOR UNKNOWN INDICATION
     Dosage: UNK, Q4H
  9. KLONOPIN [Concomitant]
     Indication: DRUG USE FOR UNKNOWN INDICATION
     Dosage: 0.5 UNK, QHS
  10. ZOCOR [Concomitant]
     Indication: DRUG USE FOR UNKNOWN INDICATION
     Dosage: 20 MG, QHS
  11. FENTANYL TRANSDERMAL SYSTEM [Concomitant]
     Indication: DRUG USE FOR UNKNOWN INDICATION
     Dosage: 25 A?G, Q3D
  12. NYSTATIN [Concomitant]
     Indication: DRUG USE FOR UNKNOWN INDICATION
     Dosage: UNK, PRN
  13. LASIX [Concomitant]
     Indication: DRUG USE FOR UNKNOWN INDICATION
     Dosage: 40 UNK, QD
  14. COREG [Concomitant]
     Indication: DRUG USE FOR UNKNOWN INDICATION
     Dosage: 3.125 UNK, BID
  15. VASOTEC [Concomitant]
     Indication: DRUG USE FOR UNKNOWN INDICATION
     Dosage: 5 UNK, BID
  16. ALEVE [Concomitant]
     Indication: DRUG USE FOR UNKNOWN INDICATION
     Dosage: UNK, BID

REACTIONS (1)
  - DYSPHAGIA [None]
